FAERS Safety Report 7033534-4 (Version None)
Quarter: 2010Q4

REPORT INFORMATION
  Report Type: 
  Country: None (occurrence: None)
  Receive Date: 20101007
  Receipt Date: 20100927
  Transmission Date: 20110411
  Serious: Yes (Other)
  Sender: FDA-Public Use
  Company Number: US-AMGEN-US340487

PATIENT
  Sex: Male
  Weight: 88.5 kg

DRUGS (5)
  1. NPLATE [Suspect]
     Indication: IDIOPATHIC THROMBOCYTOPENIC PURPURA
     Route: 058
     Dates: start: 20090216, end: 20090402
  2. PREDNISONE [Concomitant]
     Route: 065
     Dates: start: 20090202, end: 20090323
  3. RITUXIMAB [Concomitant]
     Route: 065
     Dates: start: 20090128
  4. WINRHO [Concomitant]
     Dates: start: 20090109
  5. CORTICOSTEROIDS [Concomitant]
     Dates: start: 20090108

REACTIONS (2)
  - THERAPEUTIC RESPONSE DECREASED [None]
  - URTICARIA [None]
